FAERS Safety Report 11986235 (Version 1)
Quarter: 2016Q1

REPORT INFORMATION
  Report Type: Report from Study
  Country: US (occurrence: US)
  Receive Date: 20160202
  Receipt Date: 20160202
  Transmission Date: 20160526
  Serious: No
  Sender: FDA-Public Use
  Company Number: US-ABBVIE-15K-163-1335135-00

PATIENT
  Age: 58 Year
  Sex: Female

DRUGS (3)
  1. VICTOZA [Concomitant]
     Active Substance: LIRAGLUTIDE
     Indication: PRODUCT USED FOR UNKNOWN INDICATION
  2. LEVEMIR [Concomitant]
     Active Substance: INSULIN DETEMIR
     Indication: PRODUCT USED FOR UNKNOWN INDICATION
  3. HUMIRA [Suspect]
     Active Substance: ADALIMUMAB
     Indication: PSORIASIS
     Route: 065
     Dates: start: 20141118

REACTIONS (4)
  - Injection site swelling [Recovered/Resolved]
  - Blood urine present [Not Recovered/Not Resolved]
  - Injection site pain [Recovered/Resolved]
  - Pelvic discomfort [Not Recovered/Not Resolved]

NARRATIVE: CASE EVENT DATE: 20141118
